FAERS Safety Report 8480414-3 (Version None)
Quarter: 2012Q3

REPORT INFORMATION
  Report Type: 
  Country: None (occurrence: None)
  Receive Date: 20120702
  Receipt Date: 20120618
  Transmission Date: 20120928
  Serious: Yes (Other)
  Sender: FDA-Public Use
  Company Number: US-AMGEN-USASP2012039368

PATIENT
  Age: 61 Year
  Sex: Female

DRUGS (8)
  1. MYCOPHENOLATE MOFETIL [Suspect]
     Indication: PYODERMA GANGRENOSUM
     Dosage: 15.0 UNK, UNK
  2. PREDNISONE TAB [Concomitant]
     Dosage: UNK
  3. ENBREL [Suspect]
     Dosage: UNK
  4. ENBREL [Suspect]
     Indication: PRODUCT USED FOR UNKNOWN INDICATION
     Dosage: 100MG, WEEKLY
     Route: 058
  5. REGRANEX [Concomitant]
     Dosage: UNK
  6. ENBREL [Suspect]
     Dosage: UNK
  7. MYCOPHENOLATE MOFETIL [Suspect]
     Indication: ARTHRITIS
     Dosage: 15.0 UNK, UNK
  8. MYCOPHENOLATE MOFETIL [Suspect]
     Indication: INFLAMMATORY BOWEL DISEASE
     Dosage: 1.5 G, UNK
     Route: 048

REACTIONS (2)
  - DRUG INEFFECTIVE [None]
  - PYODERMA GANGRENOSUM [None]
